FAERS Safety Report 6825249-X (Version None)
Quarter: 2010Q3

REPORT INFORMATION
  Report Type: 
  Country: None (occurrence: None)
  Receive Date: 20100708
  Receipt Date: 20070104
  Transmission Date: 20110219
  Serious: No
  Sender: FDA-Public Use
  Company Number: US-PFIZER INC-2007002272

PATIENT
  Sex: Female
  Weight: 90.72 kg

DRUGS (5)
  1. CHANTIX [Suspect]
     Indication: SMOKING CESSATION THERAPY
     Route: 048
     Dates: start: 20061226, end: 20070103
  2. VERAPAMIL [Concomitant]
     Route: 048
  3. ACCUPRIL [Concomitant]
     Route: 048
  4. HYDROCHLOROTHIAZIDE [Concomitant]
     Route: 048
  5. ZOLOFT [Concomitant]
     Route: 048

REACTIONS (3)
  - DYSPEPSIA [None]
  - NAUSEA [None]
  - VOMITING [None]
